FAERS Safety Report 6848499-5 (Version None)
Quarter: 2010Q3

REPORT INFORMATION
  Report Type: 
  Country: None (occurrence: None)
  Receive Date: 20100716
  Receipt Date: 20100707
  Transmission Date: 20110219
  Serious: Yes (Hospitalization, Other)
  Sender: FDA-Public Use
  Company Number: US-JNJFOC-20100701716

PATIENT
  Age: 85 Year
  Sex: Male
  Weight: 86.18 kg

DRUGS (2)
  1. TAPENTADOL [Suspect]
     Indication: PAIN
     Route: 048
  2. AVINZA [Suspect]
     Indication: PAIN
     Route: 048

REACTIONS (5)
  - CONFUSIONAL STATE [None]
  - DISORIENTATION [None]
  - HALLUCINATION [None]
  - MENTAL DISORDER [None]
  - SOMNOLENCE [None]
